FAERS Safety Report 25423068 (Version 1)
Quarter: 2025Q2

REPORT INFORMATION
  Report Type: Spontaneous
  Country: US (occurrence: US)
  Receive Date: 20250611
  Receipt Date: 20250611
  Transmission Date: 20250717
  Serious: Yes (Other)
  Sender: PFIZER
  Company Number: US-PFIZER INC-202400226364

PATIENT
  Age: 57 Year
  Sex: Female

DRUGS (1)
  1. TIVDAK [Suspect]
     Active Substance: TISOTUMAB VEDOTIN-TFTV
     Indication: Vulval cancer stage I
     Dosage: 160 MG, EVERY 3 WEEKS
     Route: 042
     Dates: end: 20241220

REACTIONS (3)
  - Vulval cancer stage I [Recovered/Resolved]
  - Malignant neoplasm progression [Recovered/Resolved]
  - Off label use [Unknown]
